FAERS Safety Report 7444836-1 (Version None)
Quarter: 2011Q2

REPORT INFORMATION
  Report Type: 
  Country: None (occurrence: None)
  Receive Date: 20110426
  Receipt Date: 20110426
  Transmission Date: 20111010
  Serious: Yes (Other)
  Sender: FDA-Public Use
  Company Number: None

PATIENT
  Age: 48 Year
  Sex: Female
  Weight: 65.7716 kg

DRUGS (1)
  1. CLINDAMYCIN [Suspect]
     Indication: ENDODONTIC PROCEDURE
     Dosage: 1 CAPSULE 4 X DAY PO
     Route: 048
     Dates: start: 20110419, end: 20110424

REACTIONS (3)
  - VERTIGO [None]
  - DIZZINESS [None]
  - NAUSEA [None]
